FAERS Safety Report 11510791 (Version 1)
Quarter: 2015Q3

REPORT INFORMATION
  Report Type: Spontaneous
  Country: US (occurrence: US)
  Receive Date: 20150915
  Receipt Date: 20150915
  Transmission Date: 20151125
  Serious: No
  Sender: FDA-Public Use
  Company Number: US-MYLANLABS-2015M1023072

PATIENT
  Sex: Female

DRUGS (3)
  1. SOTALOL. [Concomitant]
     Active Substance: SOTALOL
     Indication: BLOOD PRESSURE MEASUREMENT
     Dosage: UNK
     Dates: start: 2015
  2. POTASSIUM [Suspect]
     Active Substance: POTASSIUM
     Indication: BLOOD POTASSIUM DECREASED
     Dosage: 10 MEQ, BID
     Route: 048
     Dates: end: 20150627
  3. CARBAMAZEPINE. [Concomitant]
     Active Substance: CARBAMAZEPINE
     Indication: MYOCLONIC EPILEPSY
     Dosage: 100 MG, BID
     Route: 048
     Dates: start: 1998

REACTIONS (6)
  - Drug ineffective [Recovered/Resolved]
  - Heart rate increased [Recovered/Resolved]
  - Chest discomfort [Recovered/Resolved]
  - Malaise [Recovered/Resolved]
  - Medication residue present [Recovered/Resolved]
  - Blood pressure increased [Recovered/Resolved]
